FAERS Safety Report 16463353 (Version 3)
Quarter: 2019Q3

REPORT INFORMATION
  Report Type: Spontaneous
  Country: US (occurrence: US)
  Receive Date: 20190621
  Receipt Date: 20190802
  Transmission Date: 20191004
  Serious: No
  Sender: FDA-Public Use
  Company Number: US-PFIZER INC-2019266995

PATIENT
  Age: 72 Year
  Sex: Female
  Weight: 80.73 kg

DRUGS (1)
  1. LYRICA [Suspect]
     Active Substance: PREGABALIN
     Indication: PAIN IN EXTREMITY
     Dosage: 100 MG, 3X/DAY

REACTIONS (3)
  - Malaise [Not Recovered/Not Resolved]
  - Hypoaesthesia [Not Recovered/Not Resolved]
  - Hypoacusis [Not Recovered/Not Resolved]
